FAERS Safety Report 24306846 (Version 1)
Quarter: 2024Q3

REPORT INFORMATION
  Report Type: Report from Study
  Country: DE (occurrence: DE)
  Receive Date: 20240911
  Receipt Date: 20240911
  Transmission Date: 20241017
  Serious: Yes (Hospitalization)
  Sender: TORRENT
  Company Number: None

PATIENT
  Sex: Female

DRUGS (2)
  1. CELECOXIB [Suspect]
     Active Substance: CELECOXIB
     Indication: Product used for unknown indication
     Dosage: 200 MG, 2 DAYS PER WEEK
     Route: 065
  2. ERELZI [Suspect]
     Active Substance: ETANERCEPT-SZZS
     Indication: Axial spondyloarthritis
     Dosage: 50 UNK, QW (PER WEEK)
     Route: 065
     Dates: start: 20221011, end: 20240219

REACTIONS (5)
  - Localised infection [Unknown]
  - Osteoarthritis [Not Recovered/Not Resolved]
  - Injection site erythema [Unknown]
  - COVID-19 [Unknown]
  - Immunisation reaction [Unknown]

NARRATIVE: CASE EVENT DATE: 20220201
